FAERS Safety Report 12330302 (Version 1)
Quarter: 2016Q2

REPORT INFORMATION
  Report Type: Report from Study
  Country: KZ (occurrence: KZ)
  Receive Date: 20160504
  Receipt Date: 20160504
  Transmission Date: 20160815
  Serious: Yes (Other)
  Sender: FDA-Public Use
  Company Number: KZ-009507513-1605KAZ000571

PATIENT

DRUGS (3)
  1. RIBAVIRIN. [Suspect]
     Active Substance: RIBAVIRIN
     Indication: CHRONIC HEPATITIS
     Dosage: UNK
  2. PEGINTERFERON ALFA-2B [Suspect]
     Active Substance: PEGINTERFERON ALFA-2B
     Indication: CHRONIC HEPATITIS
     Dosage: UNK
  3. URSODIOL. [Suspect]
     Active Substance: URSODIOL
     Indication: CHRONIC HEPATITIS
     Dosage: 12.5 MG/KG FOR AT LEAST 3 MONTHS WITH A LATER REDUCTION TO 6-7 MG/KG

REACTIONS (1)
  - Cholestasis [Unknown]
